FAERS Safety Report 10252193 (Version 1)
Quarter: 2014Q2

REPORT INFORMATION
  Report Type: Spontaneous
  Country: TW (occurrence: None)
  Receive Date: 20140619
  Receipt Date: 20140619
  Transmission Date: 20141212
  Serious: Yes (Life-Threatening, Hospitalization)
  Sender: FDA-Public Use
  Company Number: DAV-AE-AMO-14-03

PATIENT
  Age: 82 Year
  Sex: Male

DRUGS (1)
  1. AMOXICILLIN [Suspect]

REACTIONS (2)
  - Drug eruption [None]
  - Dermatitis bullous [None]
